FAERS Safety Report 23737749 (Version 9)
Quarter: 2024Q2

REPORT INFORMATION
  Report Type: Report from Study
  Country: CA (occurrence: CA)
  Receive Date: 20240412
  Receipt Date: 20240611
  Transmission Date: 20240716
  Serious: Yes (Hospitalization, Other)
  Sender: FDA-Public Use
  Company Number: CA-BEH-2024169056

PATIENT
  Age: 83 Year
  Sex: Female

DRUGS (38)
  1. HIZENTRA [Suspect]
     Active Substance: HUMAN IMMUNOGLOBULIN G
     Indication: Secondary immunodeficiency
     Dosage: 5 GRAM, QW
     Route: 065
     Dates: start: 20231113
  2. HIZENTRA [Suspect]
     Active Substance: HUMAN IMMUNOGLOBULIN G
     Dosage: UNK
     Route: 065
  3. HIZENTRA [Suspect]
     Active Substance: HUMAN IMMUNOGLOBULIN G
     Dosage: UNK
     Route: 065
  4. HIZENTRA [Suspect]
     Active Substance: HUMAN IMMUNOGLOBULIN G
     Dosage: UNK
     Route: 065
     Dates: start: 20240219
  5. HIZENTRA [Suspect]
     Active Substance: HUMAN IMMUNOGLOBULIN G
     Dosage: UNK
     Route: 065
     Dates: start: 20240226
  6. HIZENTRA [Suspect]
     Active Substance: HUMAN IMMUNOGLOBULIN G
     Dosage: UNK
     Route: 065
  7. HIZENTRA [Suspect]
     Active Substance: HUMAN IMMUNOGLOBULIN G
     Dosage: UNK
     Route: 065
     Dates: start: 20240304
  8. HIZENTRA [Suspect]
     Active Substance: HUMAN IMMUNOGLOBULIN G
     Dosage: UNK
     Route: 065
     Dates: start: 20240312
  9. HIZENTRA [Suspect]
     Active Substance: HUMAN IMMUNOGLOBULIN G
     Dosage: UNK
     Route: 065
  10. HIZENTRA [Suspect]
     Active Substance: HUMAN IMMUNOGLOBULIN G
     Dosage: UNK
     Route: 065
     Dates: start: 20240403
  11. HIZENTRA [Suspect]
     Active Substance: HUMAN IMMUNOGLOBULIN G
     Dosage: 5 G
     Route: 065
     Dates: start: 20240412, end: 20240412
  12. HIZENTRA [Suspect]
     Active Substance: HUMAN IMMUNOGLOBULIN G
     Dosage: UNK
     Route: 065
     Dates: start: 20240423
  13. HIZENTRA [Suspect]
     Active Substance: HUMAN IMMUNOGLOBULIN G
     Dosage: 10 G
     Route: 065
     Dates: start: 20240506
  14. HIZENTRA [Suspect]
     Active Substance: HUMAN IMMUNOGLOBULIN G
     Dosage: UNK
     Route: 065
     Dates: start: 20240513
  15. ACYCLOVIR [Concomitant]
     Active Substance: ACYCLOVIR
  16. DOCUSATE [Concomitant]
     Active Substance: DOCUSATE
  17. CHOLECALCIFEROL [Concomitant]
     Active Substance: CHOLECALCIFEROL
  18. CYANOCOBALAMIN [Concomitant]
     Active Substance: CYANOCOBALAMIN
  19. SENO [Concomitant]
  20. PANTOPRAZOLE [Concomitant]
     Active Substance: PANTOPRAZOLE
     Dosage: UNK, OD
  21. PREGABALIN [Concomitant]
     Active Substance: PREGABALIN
     Dosage: UNK, OD
  22. BISOPROLOL [Concomitant]
     Active Substance: BISOPROLOL\BISOPROLOL FUMARATE
  23. BISOPROLOL [Concomitant]
     Active Substance: BISOPROLOL\BISOPROLOL FUMARATE
     Dosage: 5 MG, OD
  24. MORPHINE [Concomitant]
     Active Substance: MORPHINE
     Indication: Pain
     Dosage: UNK, PRN
  25. ACETAMINOPHEN [Concomitant]
     Active Substance: ACETAMINOPHEN
     Dosage: 1000 MG, TID
  26. AMPICILLIN [Concomitant]
     Active Substance: AMPICILLIN
     Dosage: 2000 MG, Q4H
     Route: 042
  27. APIXABAN [Concomitant]
     Active Substance: APIXABAN
     Dosage: 1 DF, BID
  28. CALCIUM [Concomitant]
     Active Substance: CALCIUM
     Dosage: 1 DF, BID
  29. CEFTRIAXONE [Concomitant]
     Active Substance: CEFTRIAXONE\CEFTRIAXONE SODIUM
     Dosage: UNK, BID
     Route: 042
  30. MELATONIN [Concomitant]
     Active Substance: MELATONIN
     Indication: Insomnia
     Dosage: UNK, PRN
  31. MORPHINE [Concomitant]
     Active Substance: MORPHINE
     Dosage: UNK, BID
  32. MORPHINE [Concomitant]
     Active Substance: MORPHINE
     Dosage: UNK, BID
  33. MORPHINE [Concomitant]
     Active Substance: MORPHINE
     Dosage: 1 ML
  34. POLYETHYLENE GLYCOL [Concomitant]
     Active Substance: POLYETHYLENE GLYCOL
     Indication: Constipation
     Dosage: UNK, PRN
  35. PREGABALIN [Concomitant]
     Active Substance: PREGABALIN
     Dosage: UNK, OD
  36. PROCHLORPERAZINE [Concomitant]
     Active Substance: PROCHLORPERAZINE
     Indication: Vomiting
     Dosage: UNK, PRN
  37. VALACYCLOVIR [Concomitant]
     Active Substance: VALACYCLOVIR HYDROCHLORIDE
     Dosage: UNK, OD
  38. VITAMIN D [Concomitant]
     Active Substance: VITAMIN D NOS
     Dosage: 1 DAY PER WEEK ON SUNDAY

REACTIONS (49)
  - Device related sepsis [Unknown]
  - Fatigue [Unknown]
  - Pyrexia [Recovered/Resolved]
  - Chills [Unknown]
  - Headache [Unknown]
  - Decreased appetite [Unknown]
  - Bowel movement irregularity [Unknown]
  - Infusion site oedema [Unknown]
  - Pain in extremity [Not Recovered/Not Resolved]
  - Pain [Not Recovered/Not Resolved]
  - Osteoarthritis [Unknown]
  - Pain [Unknown]
  - Insomnia [Unknown]
  - Fatigue [Unknown]
  - Injection site erythema [Unknown]
  - Emotional distress [Unknown]
  - Pain [Unknown]
  - Musculoskeletal stiffness [Unknown]
  - Electric shock sensation [Unknown]
  - Insomnia [Unknown]
  - Depressed mood [Unknown]
  - Blood pressure decreased [Unknown]
  - Body temperature increased [Unknown]
  - Injection site oedema [Unknown]
  - Spinal cord infection [Unknown]
  - Oedema peripheral [Unknown]
  - Polyuria [Unknown]
  - Bacterial sepsis [Unknown]
  - Fatigue [Not Recovered/Not Resolved]
  - Oedema peripheral [Unknown]
  - Face oedema [Recovering/Resolving]
  - Dyspnoea [Not Recovered/Not Resolved]
  - Somnolence [Unknown]
  - Weight increased [Not Recovered/Not Resolved]
  - Anxiety [Unknown]
  - Injection site oedema [Unknown]
  - Refusal of treatment by patient [Unknown]
  - Fatigue [Recovering/Resolving]
  - Hypersomnia [Unknown]
  - Hypophagia [Unknown]
  - Dehydration [Unknown]
  - Oedema [Recovered/Resolved]
  - Injection site oedema [Unknown]
  - Injection site erythema [Unknown]
  - Fatigue [Unknown]
  - Nausea [Recovering/Resolving]
  - Nausea [Recovering/Resolving]
  - Vomiting [Recovering/Resolving]
  - Vomiting [Recovering/Resolving]

NARRATIVE: CASE EVENT DATE: 20240101
